FAERS Safety Report 12484266 (Version 1)
Quarter: 2016Q2

REPORT INFORMATION
  Report Type: Spontaneous
  Country: US (occurrence: None)
  Receive Date: 20160620
  Receipt Date: 20160620
  Transmission Date: 20160815
  Serious: No
  Sender: FDA-Public Use
  Company Number: None

PATIENT
  Age: 83 Year
  Sex: Female
  Weight: 47.63 kg

DRUGS (18)
  1. TRAVATAN [Suspect]
     Active Substance: TRAVOPROST
  2. MSM [Concomitant]
     Active Substance: DIMETHYL SULFONE
  3. TIMOLOL. [Suspect]
     Active Substance: TIMOLOL
     Indication: OPEN ANGLE GLAUCOMA
     Dosage: 1 DROP IN EACH EYE AT BEDTIME DROPPER
     Route: 031
     Dates: start: 2009
  4. TRAVOPROST [Suspect]
     Active Substance: TRAVOPROST
  5. VITAMIN C [Concomitant]
     Active Substance: ASCORBIC ACID
  6. GLUCOSAMINE SULFATE [Concomitant]
     Active Substance: GLUCOSAMINE SULFATE
  7. LUTEIN [Concomitant]
     Active Substance: LUTEIN
  8. VITAMIN E [Concomitant]
     Active Substance: .ALPHA.-TOCOPHEROL
  9. LYCOPENE [Concomitant]
     Active Substance: LYCOPENE
  10. VITAMIN B [Concomitant]
     Active Substance: VITAMIN B
  11. VITAMIN D [Concomitant]
     Active Substance: CHOLECALCIFEROL
  12. MAGNESIUM [Concomitant]
     Active Substance: MAGNESIUM
  13. DORZOLAMIDE [Suspect]
     Active Substance: DORZOLAMIDE
  14. AMLODOPINE [Concomitant]
     Active Substance: AMLODIPINE BESYLATE
  15. VITAMIN A [Concomitant]
     Active Substance: VITAMIN A
  16. XALATAN [Suspect]
     Active Substance: LATANOPROST
  17. COQ10 [Concomitant]
     Active Substance: UBIDECARENONE
  18. LATANOPROST. [Suspect]
     Active Substance: LATANOPROST

REACTIONS (7)
  - Balance disorder [None]
  - Memory impairment [None]
  - Musculoskeletal stiffness [None]
  - Asthenia [None]
  - Fatigue [None]
  - Cerebral disorder [None]
  - Confusional state [None]

NARRATIVE: CASE EVENT DATE: 2009
